FAERS Safety Report 23576676 (Version 1)
Quarter: 2024Q1

REPORT INFORMATION
  Report Type: Spontaneous
  Country: FR (occurrence: FR)
  Receive Date: 20240228
  Receipt Date: 20240228
  Transmission Date: 20240409
  Serious: Yes (Hospitalization)
  Sender: FDA-Public Use
  Company Number: None

PATIENT
  Age: 69 Year
  Sex: Male
  Weight: 65 kg

DRUGS (2)
  1. OXALIPLATIN [Suspect]
     Active Substance: OXALIPLATIN
     Indication: Rectal adenocarcinoma
     Route: 042
     Dates: start: 20240115, end: 20240115
  2. FLUOROURACIL [Suspect]
     Active Substance: FLUOROURACIL
     Indication: Rectal adenocarcinoma
     Dosage: ROUTE: INTRAVENOUS (NOT OTHERWISE SPECIFIED)
     Dates: start: 20240115, end: 20240115

REACTIONS (1)
  - Cerebrovascular accident [Recovering/Resolving]

NARRATIVE: CASE EVENT DATE: 20240118
